FAERS Safety Report 20855991 (Version 1)
Quarter: 2022Q2

REPORT INFORMATION
  Report Type: Report from Study
  Country: JP (occurrence: JP)
  Receive Date: 20220520
  Receipt Date: 20220520
  Transmission Date: 20220720
  Serious: Yes (Hospitalization, Other)
  Sender: FDA-Public Use
  Company Number: JP-ONO-2022JP008141

PATIENT
  Age: 68 Year
  Sex: Male
  Weight: 61.3 kg

DRUGS (28)
  1. BMS-986310 [Suspect]
     Active Substance: BMS-986310
     Indication: Rectal cancer
     Dosage: 26-JAN-2022 TO 21-MAR-2022?29-MAR-2022 TO 05-APR-2022
     Route: 048
     Dates: start: 20220126, end: 20220405
  2. LUSEOGLIFLOZIN [Concomitant]
     Active Substance: LUSEOGLIFLOZIN
     Indication: Type 2 diabetes mellitus
     Dosage: 2.5 MG, EVERYDAY, STOP DATE:12-APR-2022
     Route: 048
     Dates: end: 20220412
  3. LUSEOGLIFLOZIN [Concomitant]
     Active Substance: LUSEOGLIFLOZIN
     Dosage: 2.5 MG, EVERYDAY
     Route: 048
     Dates: start: 20220420
  4. MITIGLINIDE CALCIUM HYDRATE\VOGLIBOSE [Concomitant]
     Active Substance: MITIGLINIDE CALCIUM HYDRATE\VOGLIBOSE
     Indication: Type 2 diabetes mellitus
     Dosage: 1 DF, Q8H
     Route: 048
     Dates: start: 20211005, end: 20220412
  5. MITIGLINIDE CALCIUM HYDRATE\VOGLIBOSE [Concomitant]
     Active Substance: MITIGLINIDE CALCIUM HYDRATE\VOGLIBOSE
     Dosage: 1 DF, Q8H
     Route: 048
     Dates: start: 20220420
  6. MITIGLINIDE CALCIUM HYDRATE\VOGLIBOSE [Concomitant]
     Active Substance: MITIGLINIDE CALCIUM HYDRATE\VOGLIBOSE
  7. RYBELSUS [Concomitant]
     Active Substance: SEMAGLUTIDE
     Indication: Type 2 diabetes mellitus
     Dosage: 3 MG, EVERYDAY
     Route: 048
     Dates: start: 20220214, end: 20220321
  8. RYBELSUS [Concomitant]
     Active Substance: SEMAGLUTIDE
  9. BELSOMRA [Concomitant]
     Active Substance: SUVOREXANT
     Indication: Insomnia
     Dosage: 20 MG, EVERYDAY, STOP DATE:21-MAR-2022
     Route: 048
     Dates: end: 20220321
  10. BELSOMRA [Concomitant]
     Active Substance: SUVOREXANT
     Dosage: 20 MG, EVERYDAY
     Route: 048
     Dates: start: 20220323
  11. ESZOPICLONE [Concomitant]
     Active Substance: ESZOPICLONE
     Indication: Insomnia
     Dosage: 2 MG, EVERYDAY
     Route: 048
  12. ESZOPICLONE [Concomitant]
     Active Substance: ESZOPICLONE
     Dosage: 2 MG, EVERYDAY
     Route: 048
     Dates: start: 20220323
  13. TRIAZOLAM [Concomitant]
     Active Substance: TRIAZOLAM
     Indication: Insomnia
     Dosage: 0.25 MG, EVERYDAY, STOP DATE:21-MAR-2022
     Route: 048
     Dates: end: 20220321
  14. TRIAZOLAM [Concomitant]
     Active Substance: TRIAZOLAM
     Dosage: 0.25 MG, EVERYDAY
     Route: 048
     Dates: start: 20220323
  15. METHYLCOBALAMIN [Concomitant]
     Active Substance: METHYLCOBALAMIN
     Indication: Diabetic neuropathy
     Route: 048
  16. METHYLCOBALAMIN [Concomitant]
     Active Substance: METHYLCOBALAMIN
  17. HYALURONATE SODIUM [Concomitant]
     Active Substance: HYALURONATE SODIUM
     Indication: Dry eye
     Dosage: ADEQUATE DOSE, PRN
     Route: 047
     Dates: start: 2017, end: 20220321
  18. HYALURONATE SODIUM [Concomitant]
     Active Substance: HYALURONATE SODIUM
  19. DIQUAFOSOL TETRASODIUM [Concomitant]
     Active Substance: DIQUAFOSOL TETRASODIUM
     Indication: Dry eye
     Dosage: ADEQUATE DOSE, PRN
     Route: 047
     Dates: start: 2017, end: 20220321
  20. DIQUAFOSOL TETRASODIUM [Concomitant]
     Active Substance: DIQUAFOSOL TETRASODIUM
  21. MIYA-BM [Concomitant]
     Active Substance: CLOSTRIDIUM BUTYRICUM SPORES STRAIN M-55
     Indication: Enterocolitis
     Dosage: 1 DF, Q8H
     Route: 048
     Dates: start: 20211215, end: 20220321
  22. MIYA-BM [Concomitant]
     Active Substance: CLOSTRIDIUM BUTYRICUM SPORES STRAIN M-55
  23. CALONAL [Concomitant]
     Active Substance: ACETAMINOPHEN
     Indication: Myositis
     Dosage: UP TO 2,000 MG/DAY, PRN
     Route: 048
     Dates: start: 20220222, end: 20220321
  24. CALONAL [Concomitant]
     Active Substance: ACETAMINOPHEN
  25. ATORVASTATIN [Concomitant]
     Active Substance: ATORVASTATIN
     Indication: Dyslipidaemia
     Route: 048
     Dates: start: 2012
  26. NEXIUM [Concomitant]
     Active Substance: ESOMEPRAZOLE MAGNESIUM
     Indication: Prophylaxis
     Dosage: 20 MG, EVERYDAY
     Route: 048
     Dates: start: 20211125, end: 20220321
  27. HERBAL NOS [Concomitant]
     Active Substance: HERBALS
     Indication: Decreased appetite
     Route: 048
     Dates: start: 20220202, end: 20220321
  28. CELLULASE\DIASTASE\LIPASE [Concomitant]
     Active Substance: CELLULASE\DIASTASE\LIPASE
     Indication: Decreased appetite
     Route: 048
     Dates: start: 20220202, end: 20220321

REACTIONS (2)
  - Ileus [Recovered/Resolved]
  - Drug-induced liver injury [Recovered/Resolved]

NARRATIVE: CASE EVENT DATE: 20220322
